FAERS Safety Report 9334963 (Version 1)
Quarter: 2013Q2

REPORT INFORMATION
  Report Type: Report from Study
  Country: US (occurrence: US)
  Receive Date: 20130606
  Receipt Date: 20130606
  Transmission Date: 20140414
  Serious: Yes (Other)
  Sender: FDA-Public Use
  Company Number: US-GILEAD-2013-0076468

PATIENT
  Age: 27 Year
  Sex: Female

DRUGS (2)
  1. EMTRICITABINE/TENOFOVIR DISOPROXIL FUMARATE [Suspect]
     Indication: HIV INFECTION
     Dosage: 500 MG, QD
     Route: 048
  2. EDURANT [Concomitant]
     Indication: HIV INFECTION
     Dosage: 25 MG, QD
     Route: 048

REACTIONS (1)
  - Abortion spontaneous [Recovered/Resolved]
